FAERS Safety Report 6187100-3 (Version None)
Quarter: 2009Q2

REPORT INFORMATION
  Report Type: 
  Country: None (occurrence: None)
  Receive Date: 20090512
  Receipt Date: 20090505
  Transmission Date: 20091009
  Serious: Yes (Hospitalization)
  Sender: FDA-Public Use
  Company Number: FR-BAYER-200920186GPV

PATIENT
  Age: 81 Year
  Sex: Male

DRUGS (2)
  1. CIPROFLOXACIN HYDROCHLORIDE [Suspect]
     Indication: LUNG INFECTION
     Dosage: UNIT DOSE: 400 MG
     Route: 042
     Dates: start: 20090402, end: 20090407
  2. ROCEPHIN [Concomitant]
     Indication: LUNG INFECTION
     Dosage: UNIT DOSE: 2 G
     Route: 042
     Dates: start: 20090402, end: 20090410

REACTIONS (1)
  - FIXED ERUPTION [None]
